FAERS Safety Report 11451603 (Version 2)
Quarter: 2015Q3

REPORT INFORMATION
  Report Type: Spontaneous
  Country: JP (occurrence: JP)
  Receive Date: 20150903
  Receipt Date: 20150917
  Transmission Date: 20151125
  Serious: Yes (Death, Other)
  Sender: FDA-Public Use
  Company Number: JP-ROCHE-1628209

PATIENT
  Age: 51 Year
  Sex: Female
  Weight: 47 kg

DRUGS (9)
  1. ROHYPNOL [Concomitant]
     Active Substance: FLUNITRAZEPAM
     Indication: INSOMNIA
     Route: 048
     Dates: start: 20150714, end: 20150719
  2. ROZEREM [Concomitant]
     Active Substance: RAMELTEON
     Indication: INSOMNIA
     Route: 048
     Dates: start: 20150702, end: 20150713
  3. KADCYLA [Suspect]
     Active Substance: ADO-TRASTUZUMAB EMTANSINE
     Indication: BREAST CANCER
     Dosage: FIVE TIMES
     Route: 041
     Dates: start: 20141015, end: 20150107
  4. GOREISAN [Concomitant]
     Active Substance: HERBALS
     Indication: HEADACHE
     Route: 048
     Dates: start: 20150708, end: 20150716
  5. HICEE [Concomitant]
     Indication: PIGMENTATION DISORDER
     Route: 048
     Dates: start: 20080812, end: 20150719
  6. KADCYLA [Suspect]
     Active Substance: ADO-TRASTUZUMAB EMTANSINE
     Indication: BREAST CANCER
     Dosage: SEVEN TIMES
     Route: 041
     Dates: start: 20150128, end: 20150715
  7. NEXIUM [Concomitant]
     Active Substance: ESOMEPRAZOLE MAGNESIUM
     Indication: PROPHYLAXIS
     Route: 048
     Dates: start: 201506, end: 20150719
  8. METHYCOBAL [Concomitant]
     Active Substance: METHYLCOBALAMIN
     Indication: NEUROPATHY PERIPHERAL
     Route: 048
     Dates: start: 20070710, end: 20150719
  9. ZOLPIDEM TARTRATE. [Concomitant]
     Active Substance: ZOLPIDEM TARTRATE
     Indication: INSOMNIA
     Route: 048
     Dates: start: 20150714, end: 20150719

REACTIONS (2)
  - Cerebral haemorrhage [Fatal]
  - Platelet count decreased [Unknown]

NARRATIVE: CASE EVENT DATE: 20150720
